FAERS Safety Report 8798471 (Version 2)
Quarter: 2012Q4

REPORT INFORMATION
  Report Type: 
  Country: IE (occurrence: IE)
  Receive Date: 20120920
  Receipt Date: 20121018
  Transmission Date: 20130627
  Serious: Yes (Other)
  Sender: FDA-Public Use
  Company Number: IE-PFIZER INC-2012230541

PATIENT
  Age: 62 Year
  Sex: Female

DRUGS (9)
  1. LYRICA [Suspect]
     Indication: NEURALGIA
     Dosage: 75 mg, 2x/day
     Dates: start: 201106
  2. DIAZEPAM [Concomitant]
     Indication: MUSCLE SPASMS
     Dosage: 2.5 mg, 2x/day
  3. FORTEO [Concomitant]
     Indication: SPINAL FUSION SURGERY
     Dosage: 200 mg, 2x/day
     Route: 058
  4. TYLEX [Concomitant]
     Indication: PAIN
     Dosage: UNK
  5. SOLPADEINE [Concomitant]
     Indication: PAIN
     Dosage: UNK
  6. LIDOCAINE [Concomitant]
     Dosage: 5% medicated plasters
  7. PREDNISOLONE [Concomitant]
     Indication: TRANSPLANT FAILURE
     Route: 047
  8. PREDMYCIN [Concomitant]
     Indication: TRANSPLANT FAILURE
     Route: 047
  9. CHLOROMYCETIN [Concomitant]
     Indication: PROPHYLAXIS

REACTIONS (3)
  - Macular degeneration [Not Recovered/Not Resolved]
  - Vitreous disorder [Not Recovered/Not Resolved]
  - Vision blurred [Not Recovered/Not Resolved]
